FAERS Safety Report 15757150 (Version 1)
Quarter: 2018Q4

REPORT INFORMATION
  Report Type: Spontaneous
  Country: AT (occurrence: AT)
  Receive Date: 20181224
  Receipt Date: 20181224
  Transmission Date: 20190205
  Serious: Yes (Other)
  Sender: FDA-Public Use
  Company Number: AT-UCBSA-2018055544

PATIENT
  Sex: Female

DRUGS (2)
  1. BRIVIACT [Suspect]
     Active Substance: BRIVARACETAM
     Indication: PRODUCT USED FOR UNKNOWN INDICATION
     Dosage: UNK
     Dates: start: 201811
  2. BRIVIACT [Suspect]
     Active Substance: BRIVARACETAM
     Dosage: DOSE INCREASED

REACTIONS (5)
  - Oral discomfort [Recovered/Resolved]
  - Genital blister [Recovered/Resolved]
  - Oral mucosal erythema [Recovering/Resolving]
  - Oral mucosal blistering [Recovered/Resolved]
  - Swollen tongue [Recovered/Resolved]

NARRATIVE: CASE EVENT DATE: 2018
